FAERS Safety Report 6958218-X (Version None)
Quarter: 2010Q3

REPORT INFORMATION
  Report Type: 
  Country: None (occurrence: None)
  Receive Date: 20100831
  Receipt Date: 20100817
  Transmission Date: 20110219
  Serious: Yes (Other)
  Sender: FDA-Public Use
  Company Number: BE-JNJFOC-20100808599

PATIENT

DRUGS (3)
  1. HALOPERIDOL [Suspect]
     Indication: TOURETTE'S DISORDER
     Route: 065
  2. PIMOZIDE [Suspect]
     Indication: TOURETTE'S DISORDER
     Route: 065
  3. CLONIDINE [Suspect]
     Indication: TOURETTE'S DISORDER
     Route: 065

REACTIONS (1)
  - TOURETTE'S DISORDER [None]
